FAERS Safety Report 14478970 (Version 2)
Quarter: 2018Q1

REPORT INFORMATION
  Report Type: Spontaneous
  Country: US (occurrence: US)
  Receive Date: 20180202
  Receipt Date: 20180312
  Transmission Date: 20180509
  Serious: No
  Sender: FDA-Public Use
  Company Number: US-PFIZER INC-2018044172

PATIENT
  Age: 5 Year
  Sex: Female

DRUGS (1)
  1. EUCRISA [Suspect]
     Active Substance: CRISABOROLE
     Indication: DERMATITIS ATOPIC
     Dosage: UNK, 2X/DAY (APPLY BID UNTIL IMPROVED)
     Route: 061
     Dates: start: 201710, end: 201711

REACTIONS (2)
  - Application site pain [Unknown]
  - Intentional product misuse [Unknown]

NARRATIVE: CASE EVENT DATE: 2017
